FAERS Safety Report 6161584-9 (Version None)
Quarter: 2009Q2

REPORT INFORMATION
  Report Type: 
  Country: None (occurrence: None)
  Receive Date: 20090421
  Receipt Date: 20090415
  Transmission Date: 20091009
  Serious: Yes (Hospitalization, Other)
  Sender: FDA-Public Use
  Company Number: US-PFIZER INC-2009169654

PATIENT
  Age: 81 Year
  Sex: Female

DRUGS (9)
  1. ARGATROBAN [Suspect]
     Indication: HEPARIN-INDUCED THROMBOCYTOPENIA
     Dosage: UNK
     Route: 042
     Dates: start: 20081220, end: 20081226
  2. ROCEPHIN [Concomitant]
     Route: 065
  3. FLAGYL [Concomitant]
     Route: 065
  4. ATIVAN [Concomitant]
     Route: 065
  5. REGLAN [Concomitant]
     Route: 065
  6. METOPROLOL TARTRATE [Concomitant]
     Route: 065
  7. MORPHINE [Concomitant]
     Route: 065
  8. NEXIUM [Concomitant]
     Route: 065
  9. ALL OTHER THERAPEUTIC PRODUCTS [Concomitant]
     Route: 065

REACTIONS (1)
  - HEPATIC ENZYME INCREASED [None]
